FAERS Safety Report 6933901-0 (Version None)
Quarter: 2010Q3

REPORT INFORMATION
  Report Type: 
  Country: None (occurrence: None)
  Receive Date: 20100820
  Receipt Date: 20100813
  Transmission Date: 20110219
  Serious: Yes (Hospitalization)
  Sender: FDA-Public Use
  Company Number: IT-ROCHE-717934

PATIENT
  Sex: Male

DRUGS (1)
  1. VALIUM [Suspect]
     Dosage: FREQUENCY REPORTED AS TOTAL
     Route: 048
     Dates: start: 20100630, end: 20100630

REACTIONS (1)
  - RASH GENERALISED [None]
